FAERS Safety Report 8460312-1 (Version None)
Quarter: 2012Q2

REPORT INFORMATION
  Report Type: 
  Country: None (occurrence: None)
  Receive Date: 20120622
  Receipt Date: 20120621
  Transmission Date: 20120825
  Serious: Yes (Death)
  Sender: FDA-Public Use
  Company Number: US-B.I. PHARMACEUTICALS,INC./RIDGEFIELD-2012-BP-14245BP

PATIENT
  Age: 60 Year

DRUGS (2)
  1. PRADAXA [Suspect]
  2. LOVENOX [Concomitant]

REACTIONS (1)
  - HAEMORRHAGIC STROKE [None]
